FAERS Safety Report 22142293 (Version 2)
Quarter: 2023Q2

REPORT INFORMATION
  Report Type: Report from Study
  Country: CA (occurrence: CA)
  Receive Date: 20230327
  Receipt Date: 20230522
  Transmission Date: 20230721
  Serious: Yes (Hospitalization, Other)
  Sender: FDA-Public Use
  Company Number: CA-KOREA IPSEN Pharma-2023-07101

PATIENT
  Age: 63 Year
  Sex: Female

DRUGS (10)
  1. LANREOTIDE ACETATE [Suspect]
     Active Substance: LANREOTIDE ACETATE
     Indication: Neuroendocrine tumour
     Route: 058
     Dates: start: 20170112
  2. TEMODAL [Concomitant]
     Active Substance: TEMOZOLOMIDE
     Dosage: 300MG PO ON 10TH + 14TH DAY OF 28DAYS CYCLE
  3. ONDANSETRON [Concomitant]
     Active Substance: ONDANSETRON
     Dosage: 8 MG PO PRN
  4. DEXAMETHASONE [Concomitant]
     Active Substance: DEXAMETHASONE
     Dosage: 2MG PO BID X 48H POST-CHEMO
  5. SYNTHROID [Concomitant]
     Active Substance: LEVOTHYROXINE SODIUM
     Dosage: 0.075 MG PO DIE
  6. EYEDROP [Concomitant]
  7. CORTEF [Concomitant]
     Active Substance: HYDROCORTISONE
     Dosage: 10 MG PO BID
  8. CAPECITABINE [Concomitant]
     Active Substance: CAPECITABINE
     Dosage: L G PO BID DAY 1 AND 14TH
  9. DESMOPRESSIN [Concomitant]
     Active Substance: DESMOPRESSIN
     Dosage: 0.05MG PO BID
  10. CHOLECALCIFEROL [Concomitant]
     Active Substance: CHOLECALCIFEROL
     Dosage: 10 OOO UI 3TABS PO IX/WEEK

REACTIONS (10)
  - Loss of consciousness [Unknown]
  - Fall [Unknown]
  - Head injury [Unknown]
  - Influenza [Unknown]
  - Cough [Unknown]
  - Oropharyngeal pain [Unknown]
  - Pyrexia [Unknown]
  - Dizziness [Unknown]
  - SARS-CoV-2 test positive [Unknown]
  - Dizziness [Recovered/Resolved]

NARRATIVE: CASE EVENT DATE: 20230314
